FAERS Safety Report 5854958-4 (Version None)
Quarter: 2008Q3

REPORT INFORMATION
  Report Type: 
  Country: None (occurrence: None)
  Receive Date: 20080822
  Receipt Date: 20080812
  Transmission Date: 20090109
  Serious: Yes (Other)
  Sender: FDA-Public Use
  Company Number: BR-PFIZER INC-2008069135

PATIENT
  Sex: Female

DRUGS (1)
  1. LATANOPROST [Suspect]
     Route: 047

REACTIONS (2)
  - CHEMOTHERAPY [None]
  - MEDICATION ERROR [None]
